FAERS Safety Report 10161050 (Version 1)
Quarter: 2014Q2

REPORT INFORMATION
  Report Type: Spontaneous
  Country: US (occurrence: US)
  Receive Date: 20140508
  Receipt Date: 20140508
  Transmission Date: 20141212
  Serious: No
  Sender: FDA-Public Use
  Company Number: US-SA-2014SA015929

PATIENT
  Age: 54 Year
  Sex: Female

DRUGS (1)
  1. KYNAMRO [Suspect]
     Indication: TYPE IIA HYPERLIPIDAEMIA
     Route: 065
     Dates: start: 201311

REACTIONS (5)
  - Injection site erythema [Unknown]
  - Injection site pruritus [Unknown]
  - Pruritus [Unknown]
  - Erythema [Unknown]
  - Influenza like illness [Recovered/Resolved]
